FAERS Safety Report 5710737-X (Version None)
Quarter: 2008Q2

REPORT INFORMATION
  Report Type: 
  Country: None (occurrence: None)
  Receive Date: 20080421
  Receipt Date: 20080409
  Transmission Date: 20081010
  Serious: Yes (Hospitalization)
  Sender: FDA-Public Use
  Company Number: FR-JNJFOC-20080402877

PATIENT
  Age: 4 Decade
  Sex: Male
  Weight: 99 kg

DRUGS (7)
  1. REMICADE [Suspect]
     Route: 042
  2. REMICADE [Suspect]
     Route: 042
  3. REMICADE [Suspect]
     Route: 042
  4. REMICADE [Suspect]
     Route: 042
  5. REMICADE [Suspect]
     Indication: CROHN'S DISEASE
     Route: 042
  6. PREDNISONE [Concomitant]
     Indication: CROHN'S DISEASE
  7. PANTOPRAZOLE SODIUM [Concomitant]
     Indication: GASTROINTESTINAL DISORDER THERAPY

REACTIONS (1)
  - GASTROENTERITIS [None]
